FAERS Safety Report 6585398-0 (Version None)
Quarter: 2010Q1

REPORT INFORMATION
  Report Type: 
  Country: None (occurrence: None)
  Receive Date: 20100217
  Receipt Date: 20100212
  Transmission Date: 20100710
  Serious: Yes (Hospitalization, Other)
  Sender: FDA-Public Use
  Company Number: A0842346A

PATIENT
  Age: 71 Year
  Sex: Male
  Weight: 67.3 kg

DRUGS (4)
  1. ADVAIR DISKUS 100/50 [Suspect]
     Indication: DRUG USE FOR UNKNOWN INDICATION
     Route: 055
  2. VERAMYST [Suspect]
     Route: 045
  3. LEVAQUIN [Suspect]
     Indication: DRUG USE FOR UNKNOWN INDICATION
     Route: 065
  4. ALLEGRA [Concomitant]

REACTIONS (2)
  - TENDON PAIN [None]
  - TENDON RUPTURE [None]
